FAERS Safety Report 4660408-6 (Version None)
Quarter: 2005Q2

REPORT INFORMATION
  Report Type: 
  Country: None (occurrence: None)
  Receive Date: 20050427
  Receipt Date: 20050309
  Transmission Date: 20051028
  Serious: No
  Sender: FDA-Public Use
  Company Number: 212989

PATIENT
  Age: 69 Year
  Sex: Female
  Weight: 91 kg

DRUGS (12)
  1. XOLAIR [Suspect]
     Indication: ASTHMA
     Dosage: 300 MG, 4/WEEK, SUBCUTANEOUS
     Route: 058
     Dates: start: 20041118, end: 20050222
  2. ADVAIR (FLUTICASONE PROPIONATE, SALMETEROL XINAFOATE) [Concomitant]
  3. SINGULAIR [Concomitant]
  4. ZYRTEC [Concomitant]
  5. OPTIVAR (AZELASTINE HYDROCHLORIDE) [Concomitant]
  6. ALPHAGAN [Concomitant]
  7. CARDIZEM [Concomitant]
  8. COZAAR [Concomitant]
  9. PREVACID [Concomitant]
  10. LEXAPRO [Concomitant]
  11. TRAVATAN (TRAVOPOST) [Concomitant]
  12. MAXAIR [Concomitant]

REACTIONS (1)
  - HYPOAESTHESIA [None]
